FAERS Safety Report 7871049-1 (Version None)
Quarter: 2011Q4

REPORT INFORMATION
  Report Type: 
  Country: None (occurrence: None)
  Receive Date: 20111029
  Receipt Date: 20110223
  Transmission Date: 20120403
  Serious: No
  Sender: FDA-Public Use
  Company Number: US-AMGEN-USASP2011010517

PATIENT
  Age: 66 Year
  Sex: Female

DRUGS (1)
  1. ENBREL [Suspect]
     Indication: RHEUMATOID ARTHRITIS
     Dosage: 50 MG, QWK

REACTIONS (8)
  - CHILLS [None]
  - INJECTION SITE PRURITUS [None]
  - INJECTION SITE WARMTH [None]
  - INJECTION SITE HAEMATOMA [None]
  - ARTHRALGIA [None]
  - JOINT ADHESION [None]
  - INJECTION SITE REACTION [None]
  - INJECTION SITE ERYTHEMA [None]
